FAERS Safety Report 7295829-9 (Version None)
Quarter: 2011Q1

REPORT INFORMATION
  Report Type: 
  Country: None (occurrence: None)
  Receive Date: 20110216
  Receipt Date: 20110119
  Transmission Date: 20110831
  Serious: No
  Sender: FDA-Public Use
  Company Number: US-ABBOTT-11P-163-0700095-00

PATIENT
  Sex: Female
  Weight: 104.42 kg

DRUGS (6)
  1. ADVAIR [Concomitant]
     Indication: ASTHMA
  2. PANTOPRAZOLE [Concomitant]
     Indication: GASTROOESOPHAGEAL REFLUX DISEASE
  3. FLUTICASONE PROPIONATE [Concomitant]
     Indication: ASTHMA
     Dates: start: 20050101
  4. ASPIRIN [Concomitant]
     Indication: PROPHYLAXIS
     Dosage: 30 MINUTES PRIOR TO SIMCOR
  5. SIMCOR [Suspect]
     Indication: BLOOD CHOLESTEROL INCREASED
     Dates: start: 20110102
  6. BENICAR HCT [Concomitant]
     Indication: HYPERTENSION
     Dosage: 40/25 MILLIGRAM

REACTIONS (7)
  - DIARRHOEA [None]
  - PARAESTHESIA [None]
  - DIZZINESS [None]
  - NAUSEA [None]
  - FLUSHING [None]
  - ASTHENIA [None]
  - LOSS OF CONSCIOUSNESS [None]
